FAERS Safety Report 4350417-9 (Version None)
Quarter: 2004Q2

REPORT INFORMATION
  Report Type: 
  Country: None (occurrence: None)
  Receive Date: 20040427
  Receipt Date: 20040413
  Transmission Date: 20050107
  Serious: Yes (Hospitalization)
  Sender: FDA-Public Use
  Company Number: 2004208800US

PATIENT
  Sex: Female

DRUGS (3)
  1. GLYNASE [Suspect]
     Dosage: 6 MG, BID
  2. NAMENDA [Suspect]
  3. EXELON [Concomitant]

REACTIONS (2)
  - DRUG INTERACTION [None]
  - HYPOGLYCAEMIA [None]
